FAERS Safety Report 18260128 (Version 4)
Quarter: 2021Q1

REPORT INFORMATION
  Report Type: Spontaneous
  Country: US (occurrence: US)
  Receive Date: 20200913
  Receipt Date: 20210310
  Transmission Date: 20210419
  Serious: No
  Sender: FDA-Public Use
  Company Number: US-SA-2020SA246595

PATIENT
  Age: 16 Year
  Sex: Female

DRUGS (3)
  1. PENICILLIN [PENICILLIN NOS] [Suspect]
     Active Substance: PENICILLIN
     Dosage: UNK
  2. DUPIXENT [Suspect]
     Active Substance: DUPILUMAB
     Indication: DERMATITIS ATOPIC
     Dosage: 200 MG, QOW
     Route: 058
     Dates: start: 20200813, end: 2020
  3. DUPIXENT [Suspect]
     Active Substance: DUPILUMAB
     Dosage: 400 MG, QOW
     Route: 058
     Dates: start: 20200902

REACTIONS (6)
  - Extra dose administered [Unknown]
  - Drug hypersensitivity [Unknown]
  - Rash [Unknown]
  - Injection site pain [Unknown]
  - Condition aggravated [Unknown]
  - Product use issue [Unknown]

NARRATIVE: CASE EVENT DATE: 20200813
